FAERS Safety Report 6883465-5 (Version None)
Quarter: 2010Q3

REPORT INFORMATION
  Report Type: 
  Country: None (occurrence: None)
  Receive Date: 20100729
  Receipt Date: 20100727
  Transmission Date: 20110219
  Serious: Yes (Hospitalization, Other)
  Sender: FDA-Public Use
  Company Number: GXKR2010DE08297

PATIENT
  Sex: Male

DRUGS (3)
  1. CIPRO 1A PHARMA (NGX) [Suspect]
     Indication: WOUND INFECTION STAPHYLOCOCCAL
     Dosage: 500 MG, BID
     Route: 048
     Dates: start: 20100706
  2. CIPRO 1A PHARMA (NGX) [Suspect]
     Dosage: 500 MG, QD
     Route: 048
  3. CO-TRIMOXAZOLE FORTE ^A.L.^ [Suspect]
     Indication: WOUND INFECTION STAPHYLOCOCCAL
     Dosage: 960 MG, BID
     Route: 048
     Dates: start: 20100706

REACTIONS (4)
  - ABDOMINAL PAIN [None]
  - CHEST DISCOMFORT [None]
  - LUNG NEOPLASM MALIGNANT [None]
  - NAUSEA [None]
